FAERS Safety Report 8352863-5 (Version None)
Quarter: 2012Q2

REPORT INFORMATION
  Report Type: 
  Country: None (occurrence: None)
  Receive Date: 20120511
  Receipt Date: 20120430
  Transmission Date: 20120825
  Serious: No
  Sender: FDA-Public Use
  Company Number: IT-ELI_LILLY_AND_COMPANY-IT201205000934

PATIENT
  Age: 35 Year
  Sex: Male

DRUGS (6)
  1. ZYPREXA [Suspect]
     Indication: PSYCHOTIC DISORDER
     Dosage: 10 MG, QD
     Dates: start: 20070501
  2. HALOPERIDOL [Concomitant]
  3. VALPROATE SODIUM [Concomitant]
  4. ZYPREXA [Suspect]
     Dosage: UNK UNK, QD
     Dates: end: 20080801
  5. ZYPREXA [Suspect]
     Dosage: UNK, QD
     Dates: start: 20090401, end: 20110801
  6. BENZODIAZEPINE RELATED DRUGS [Concomitant]

REACTIONS (1)
  - EOSINOPHILIA [None]
